FAERS Safety Report 9654782 (Version 1)
Quarter: 2013Q4

REPORT INFORMATION
  Report Type: Spontaneous
  Country: US (occurrence: US)
  Receive Date: 20131029
  Receipt Date: 20131029
  Transmission Date: 20140711
  Serious: Yes (Other)
  Sender: FDA-Public Use
  Company Number: US-NAPPMUNDI-USA-2012-0089251

PATIENT
  Sex: Male

DRUGS (6)
  1. OXYCONTIN TABLETS [Suspect]
     Indication: DRUG ABUSE
  2. PERCOCET /00867901/ [Suspect]
     Indication: DRUG ABUSE
  3. VICODIN [Suspect]
     Indication: DRUG ABUSE
  4. HEROIN [Suspect]
     Indication: DRUG ABUSE
  5. METHYLENEDIOXYMETHAMPHETAMINE [Suspect]
     Indication: DRUG ABUSE
  6. LSD [Suspect]
     Indication: DRUG ABUSE

REACTIONS (2)
  - Drug dependence [Recovering/Resolving]
  - Substance abuse [Recovering/Resolving]
